FAERS Safety Report 9204243 (Version 2)
Quarter: 2013Q2

REPORT INFORMATION
  Report Type: Spontaneous
  Country: US (occurrence: US)
  Receive Date: 20130402
  Receipt Date: 20130523
  Transmission Date: 20140414
  Serious: Yes (Death, Other)
  Sender: FDA-Public Use
  Company Number: US-ELI_LILLY_AND_COMPANY-US201301005670

PATIENT
  Age: 52 Year
  Sex: Female

DRUGS (5)
  1. HUMALOG LISPRO [Suspect]
     Dosage: 12 U, BID
     Dates: start: 20120827
  2. HUMALOG LISPRO [Suspect]
     Dosage: 17 U, BID
     Dates: start: 20120827
  3. HUMULIN NPH [Suspect]
     Dosage: 30 U, EACH MORNING
     Dates: start: 20120827
  4. HUMULIN NPH [Suspect]
     Dosage: 30 U, EACH EVENING
     Dates: start: 20120827
  5. OMPRAZOLE [Concomitant]

REACTIONS (2)
  - Brain cancer metastatic [Fatal]
  - Blood glucose increased [Not Recovered/Not Resolved]
